FAERS Safety Report 9899908 (Version 1)
Quarter: 2014Q1

REPORT INFORMATION
  Report Type: Not Available
  Country: US (occurrence: US)
  Receive Date: 20140214
  Receipt Date: 20140214
  Transmission Date: 20141002
  Serious: No
  Sender: FDA-Public Use
  Company Number: US-VIVUS-2013V1000796

PATIENT
  Sex: Female

DRUGS (4)
  1. QSYMIA 11.25MG/69MG [Suspect]
     Indication: WEIGHT DECREASED
     Route: 048
     Dates: start: 201306, end: 201310
  2. QSYMIA 7.5MG/46MG [Suspect]
     Indication: WEIGHT DECREASED
     Route: 048
     Dates: start: 201301, end: 2013
  3. QSYMIA 3.75MG/23MG [Suspect]
     Indication: WEIGHT DECREASED
     Route: 048
     Dates: start: 2012
  4. SYNTHROID [Concomitant]
     Indication: HYPOTHYROIDISM
     Dosage: 88 MCG BUT THE PATIENT WAS NOT SURE ABOUT THE MCG
     Route: 048
     Dates: start: 2009

REACTIONS (1)
  - Rash [Recovering/Resolving]
